FAERS Safety Report 9671592 (Version 3)
Quarter: 2014Q1

REPORT INFORMATION
  Report Type: Spontaneous
  Country: ES (occurrence: None)
  Receive Date: 20131104
  Receipt Date: 20140204
  Transmission Date: 20141002
  Serious: Yes (Life-Threatening, Hospitalization, Other)
  Sender: FDA-Public Use
  Company Number: 2013MPI00654

PATIENT
  Age: 67 Year
  Sex: Male

DRUGS (1)
  1. BRENTUXIMAB VEDOTIN [Suspect]
     Indication: HODGKIN^S DISEASE
     Route: 042
     Dates: start: 20130623, end: 20130725

REACTIONS (20)
  - Multi-organ disorder [None]
  - Coma [None]
  - Septic shock [None]
  - Device related infection [None]
  - Serratia bacteraemia [None]
  - Peripheral sensorimotor neuropathy [None]
  - Myelodysplastic syndrome [None]
  - Respiratory failure [None]
  - Renal failure [None]
  - Circulatory collapse [None]
  - Metabolic acidosis [None]
  - Coagulopathy [None]
  - Catheter site cellulitis [None]
  - Catheter site infection [None]
  - Encephalopathy [None]
  - Pancytopenia [None]
  - Neutropenia [None]
  - Pleural effusion [None]
  - Atelectasis [None]
  - Pneumatosis [None]
